FAERS Safety Report 11626471 (Version 1)
Quarter: 2015Q4

REPORT INFORMATION
  Report Type: Spontaneous
  Country: US (occurrence: US)
  Receive Date: 20151013
  Receipt Date: 20151013
  Transmission Date: 20160304
  Serious: No
  Sender: FDA-Public Use
  Company Number: US-ROCHE-1562143

PATIENT
  Sex: Male
  Weight: 84.9 kg

DRUGS (17)
  1. CELEBREX [Concomitant]
     Active Substance: CELECOXIB
     Route: 065
     Dates: start: 20140818
  2. PRILOSEC [Concomitant]
     Active Substance: OMEPRAZOLE MAGNESIUM
     Route: 065
     Dates: start: 20140611
  3. LASIX [Concomitant]
     Active Substance: FUROSEMIDE
     Route: 065
     Dates: start: 20140430
  4. GLUCOPHAGE [Concomitant]
     Active Substance: METFORMIN HYDROCHLORIDE
     Route: 065
     Dates: start: 20140430
  5. INVOKANA [Concomitant]
     Active Substance: CANAGLIFLOZIN
     Route: 065
     Dates: start: 20141216
  6. ZESTRIL [Concomitant]
     Active Substance: LISINOPRIL
     Route: 065
     Dates: start: 20140930
  7. LANTUS SOLOSTAR [Concomitant]
     Active Substance: INSULIN GLARGINE
     Dosage: 20 UNITS DAILY
     Route: 058
     Dates: start: 20140430
  8. XANAX [Concomitant]
     Active Substance: ALPRAZOLAM
     Dosage: 2 TABLETS IN NIGHT WHEN REQUIRED
     Route: 048
     Dates: start: 20141028
  9. CELEXA (UNITED STATES) [Concomitant]
     Route: 065
     Dates: start: 20140430
  10. DAYPRO [Suspect]
     Active Substance: OXAPROZIN
     Indication: PRODUCT USED FOR UNKNOWN INDICATION
     Route: 065
  11. INDOCIN [Suspect]
     Active Substance: INDOMETHACIN\INDOMETHACIN SODIUM
     Indication: PRODUCT USED FOR UNKNOWN INDICATION
     Route: 065
  12. DURAGESIC [Concomitant]
     Active Substance: FENTANYL
     Route: 065
     Dates: start: 20140204
  13. NAPROSYN [Suspect]
     Active Substance: NAPROXEN
     Indication: PRODUCT USED FOR UNKNOWN INDICATION
     Route: 065
  14. GLUCOTROL [Concomitant]
     Active Substance: GLIPIZIDE
     Route: 065
     Dates: start: 20140204
  15. COUMADIN [Concomitant]
     Active Substance: WARFARIN SODIUM
     Dosage: CURRENT DOSE: 1-HALF TABLET ON MONDAY, WENSDAY AND FRIDAY AND 1 TABLET ALL OTHER DAY
     Route: 065
     Dates: start: 20141210
  16. SOMA [Concomitant]
     Active Substance: CARISOPRODOL
     Indication: MUSCLE SPASMS
     Route: 048
     Dates: start: 20141028
  17. ZOCOR [Concomitant]
     Active Substance: SIMVASTATIN
     Route: 048
     Dates: start: 20140930

REACTIONS (3)
  - Rash [Unknown]
  - Drug hypersensitivity [Unknown]
  - Food allergy [Unknown]
